FAERS Safety Report 15963137 (Version 1)
Quarter: 2019Q1

REPORT INFORMATION
  Report Type: Spontaneous
  Country: US (occurrence: US)
  Receive Date: 20190214
  Receipt Date: 20190214
  Transmission Date: 20190417
  Serious: No
  Sender: FDA-Public Use
  Company Number: US-ALLERGAN-1841988US

PATIENT
  Sex: Male
  Weight: 81.63 kg

DRUGS (2)
  1. ZINC. [Concomitant]
     Active Substance: ZINC
     Dosage: UNK
     Route: 065
  2. TAZORAC [Suspect]
     Active Substance: TAZAROTENE
     Indication: ACNE
     Dosage: 0.1% APPLIED TO FACE 1 TIME PER
     Route: 061
     Dates: start: 201808

REACTIONS (4)
  - Skin tightness [Recovered/Resolved]
  - Application site erythema [Recovered/Resolved]
  - Skin exfoliation [Recovered/Resolved]
  - Application site dryness [Recovered/Resolved]

NARRATIVE: CASE EVENT DATE: 201808
